FAERS Safety Report 4459900-9 (Version None)
Quarter: 2004Q3

REPORT INFORMATION
  Report Type: 
  Country: None (occurrence: None)
  Receive Date: 20040928
  Receipt Date: 20030902
  Transmission Date: 20050211
  Serious: No
  Sender: FDA-Public Use
  Company Number: US-GLAXOSMITHKLINE-A0424345A

PATIENT
  Age: 81 Year
  Sex: Female

DRUGS (9)
  1. SEREVENT [Suspect]
     Indication: ASTHMA
     Dosage: 1PUFF TWICE PER DAY
     Route: 055
     Dates: start: 20030816, end: 20030821
  2. PULMICORT [Concomitant]
  3. MONOPRIL [Concomitant]
  4. LASIX [Concomitant]
  5. ACCOLATE [Concomitant]
  6. VENTOLIN [Concomitant]
  7. PREDNISONE [Concomitant]
  8. ASPIRIN [Concomitant]
  9. FOSAMAX [Concomitant]

REACTIONS (4)
  - DYSPNOEA [None]
  - HEART RATE INCREASED [None]
  - OEDEMA MOUTH [None]
  - PRURITUS [None]
